FAERS Safety Report 16790275 (Version 1)
Quarter: 2019Q4

REPORT INFORMATION
  Report Type: Spontaneous
  Country: US (occurrence: US)
  Receive Date: 20190909
  Receipt Date: 20190909
  Transmission Date: 20200122
  Serious: Yes (Hospitalization)
  Sender: FDA-Public Use
  Company Number: None

PATIENT
  Age: 24 Year
  Sex: Female

DRUGS (15)
  1. PULMOZYME [Suspect]
     Active Substance: DORNASE ALFA
     Indication: CYSTIC FIBROSIS
     Route: 048
     Dates: start: 20141118
  2. NOVOLOG [Concomitant]
     Active Substance: INSULIN ASPART
  3. TOBI [Concomitant]
     Active Substance: TOBRAMYCIN
  4. PREDNISONE. [Concomitant]
     Active Substance: PREDNISONE
  5. PANTOPRAZOLE [Concomitant]
     Active Substance: PANTOPRAZOLE
  6. FLOVENT [Concomitant]
     Active Substance: FLUTICASONE PROPIONATE
  7. BUPRENORPHIN [Concomitant]
     Active Substance: BUPRENORPHINE
  8. PANCREALIPASE [Concomitant]
     Active Substance: PANCRELIPASE
  9. PHYTONADIONE. [Concomitant]
     Active Substance: PHYTONADIONE
  10. SODIUM CHLORIDE. [Concomitant]
     Active Substance: SODIUM CHLORIDE
  11. FLUTICASONE. [Concomitant]
     Active Substance: FLUTICASONE
  12. INSULIN LISPRO [Concomitant]
     Active Substance: INSULIN LISPRO
  13. NEURONTIN [Concomitant]
     Active Substance: GABAPENTIN
  14. PROVENTIL [Concomitant]
     Active Substance: ALBUTEROL
  15. LANTUS [Concomitant]
     Active Substance: INSULIN GLARGINE

REACTIONS (4)
  - Maternal drugs affecting foetus [None]
  - Lung disorder [None]
  - Maternal exposure timing unspecified [None]
  - Condition aggravated [None]
